FAERS Safety Report 16660549 (Version 1)
Quarter: 2019Q3

REPORT INFORMATION
  Report Type: Report from Study
  Country: JP (occurrence: JP)
  Receive Date: 20190802
  Receipt Date: 20190802
  Transmission Date: 20191004
  Serious: Yes (Other)
  Sender: FDA-Public Use
  Company Number: JP-JNJFOC-20190736724

PATIENT

DRUGS (2)
  1. BEVACIZUMAB RECOMBINANT [Concomitant]
     Active Substance: BEVACIZUMAB
     Indication: OVARIAN CANCER RECURRENT
     Dosage: UNKNOWN
     Route: 065
  2. DOXIL [Suspect]
     Active Substance: DOXORUBICIN HYDROCHLORIDE
     Indication: OVARIAN CANCER
     Dosage: DOXORUBICIN HYDROCHLORIDE:20MG
     Route: 042

REACTIONS (4)
  - Intestinal perforation [Unknown]
  - Proteinuria [Unknown]
  - Deep vein thrombosis [Unknown]
  - Hypertension [Unknown]
